FAERS Safety Report 21249594 (Version 1)
Quarter: 2022Q3

REPORT INFORMATION
  Report Type: Spontaneous
  Country: CN (occurrence: None)
  Receive Date: 20220824
  Receipt Date: 20220824
  Transmission Date: 20221027
  Serious: Yes (Other)
  Sender: FDA-Public Use
  Company Number: 2022A288551

PATIENT
  Age: 56 Year
  Sex: Male

DRUGS (1)
  1. GEFITINIB [Suspect]
     Active Substance: GEFITINIB
     Indication: Lung adenocarcinoma stage IV
     Route: 048
     Dates: start: 20190918

REACTIONS (4)
  - Contracted bladder [Recovered/Resolved]
  - Diarrhoea [Unknown]
  - Hepatic enzyme increased [Recovered/Resolved]
  - Cystitis haemorrhagic [Recovered/Resolved]

NARRATIVE: CASE EVENT DATE: 20190901
